FAERS Safety Report 8157866-1 (Version None)
Quarter: 2012Q1

REPORT INFORMATION
  Report Type: 
  Country: None (occurrence: None)
  Receive Date: 20120222
  Receipt Date: 20120214
  Transmission Date: 20120608
  Serious: Yes (Other)
  Sender: FDA-Public Use
  Company Number: CH-ASTRAZENECA-2012SE10245

PATIENT
  Age: 60 Year
  Sex: Male

DRUGS (2)
  1. MEPIVACAINE HCL [Suspect]
     Route: 053
  2. BUPIVACAINE HCL [Suspect]
     Route: 053

REACTIONS (3)
  - OCULAR RETROBULBAR HAEMORRHAGE [None]
  - RETINAL ARTERY OCCLUSION [None]
  - OPTIC NERVE SHEATH HAEMORRHAGE [None]
